FAERS Safety Report 6940091-7 (Version None)
Quarter: 2010Q3

REPORT INFORMATION
  Report Type: 
  Country: None (occurrence: None)
  Receive Date: 20100820
  Receipt Date: 20100805
  Transmission Date: 20110219
  Serious: Yes (Other)
  Sender: FDA-Public Use
  Company Number: 2010S1000696

PATIENT
  Age: 88 Year
  Sex: Female
  Weight: 49 kg

DRUGS (6)
  1. LIVALO [Suspect]
     Indication: HYPERCHOLESTEROLAEMIA
     Dosage: 2 MG 1X PO
     Route: 048
     Dates: start: 20040304, end: 20090306
  2. LIVALO [Suspect]
     Indication: HYPERCHOLESTEROLAEMIA
     Dosage: 2 MG 1X PO
     Route: 048
     Dates: start: 20090307
  3. PERINDOPRIL ERBUMINE [Concomitant]
  4. BALOTEIN [Concomitant]
  5. VASOMET [Concomitant]
  6. AVAPRO [Concomitant]

REACTIONS (2)
  - MEAN CELL VOLUME DECREASED [None]
  - RED BLOOD CELL COUNT DECREASED [None]
